FAERS Safety Report 7653860-5 (Version None)
Quarter: 2011Q3

REPORT INFORMATION
  Report Type: 
  Country: None (occurrence: None)
  Receive Date: 20110727
  Receipt Date: 20100817
  Transmission Date: 20111222
  Serious: Yes (Hospitalization)
  Sender: FDA-Public Use
  Company Number: OMPQ-PR-1008S-0735

PATIENT
  Age: 56 Year
  Sex: Male

DRUGS (1)
  1. OMNIPAQUE 140 [Suspect]
     Indication: CHEST PAIN
     Dosage: 100 ML, SINGLE DOSE, INTRAVENOUS
     Route: 042
     Dates: start: 20100817, end: 20100817

REACTIONS (9)
  - DYSPNOEA [None]
  - BLOOD PRESSURE INCREASED [None]
  - INCONTINENCE [None]
  - UNRESPONSIVE TO STIMULI [None]
  - FAECAL INCONTINENCE [None]
  - HYPERHIDROSIS [None]
  - MALAISE [None]
  - ANAPHYLACTOID REACTION [None]
  - CONVULSION [None]
